FAERS Safety Report 10012128 (Version 1)
Quarter: 2014Q1

REPORT INFORMATION
  Report Type: Spontaneous
  Country: US (occurrence: US)
  Receive Date: 20140314
  Receipt Date: 20140314
  Transmission Date: 20141002
  Serious: Yes (Other)
  Sender: FDA-Public Use
  Company Number: US-GLAXOSMITHKLINE-A1063888A

PATIENT
  Age: 47 Year
  Sex: Female

DRUGS (7)
  1. ADVAIR [Suspect]
     Indication: CHRONIC OBSTRUCTIVE PULMONARY DISEASE
     Route: 055
     Dates: start: 2011
  2. ASPIRIN [Concomitant]
  3. ZYRTEC [Concomitant]
  4. PAXIL [Concomitant]
  5. IBUPROFEN [Concomitant]
  6. VICODIN [Concomitant]
  7. PRO-AIR [Concomitant]

REACTIONS (10)
  - Basal cell carcinoma [Not Recovered/Not Resolved]
  - Shoulder operation [Unknown]
  - Cyst [Unknown]
  - Sinus polyp [Unknown]
  - Ear infection [Unknown]
  - Synovial cyst [Unknown]
  - Musculoskeletal pain [Unknown]
  - Pain in extremity [Unknown]
  - Arthralgia [Unknown]
  - Expired drug administered [Unknown]
